FAERS Safety Report 10273988 (Version 1)
Quarter: 2014Q2

REPORT INFORMATION
  Report Type: Spontaneous
  Country: US (occurrence: None)
  Receive Date: 20140630
  Receipt Date: 20140630
  Transmission Date: 20141212
  Serious: No
  Sender: FDA-Public Use
  Company Number: None

PATIENT
  Sex: Female

DRUGS (1)
  1. XELJANZ 5MG TABLET PFIZER [Suspect]
     Indication: RHEUMATOID ARTHRITIS
     Dosage: STARTED 6 WEEKS AGO + ONGOING, 5MG, BID, PO
     Route: 048

REACTIONS (3)
  - Abdominal distension [None]
  - Abdominal pain [None]
  - Flushing [None]
